FAERS Safety Report 16563805 (Version 1)
Quarter: 2019Q3

REPORT INFORMATION
  Report Type: Spontaneous
  Country: US (occurrence: US)
  Receive Date: 20190712
  Receipt Date: 20190712
  Transmission Date: 20191004
  Serious: No
  Sender: FDA-Public Use
  Company Number: US-GLAXOSMITHKLINE-US2019124551

PATIENT
  Age: 82 Year
  Sex: Male

DRUGS (2)
  1. ABREVA [Suspect]
     Active Substance: DOCOSANOL
     Indication: ORAL HERPES
     Dosage: UNK (5 OR 6 TIMES IN A DAY)
     Dates: start: 201906
  2. ABREVA [Suspect]
     Active Substance: DOCOSANOL
     Dosage: UNK (5 OR 6 TIMES IN A DAY)
     Dates: start: 201906

REACTIONS (3)
  - Drug ineffective [Unknown]
  - Inappropriate schedule of product administration [Unknown]
  - Incorrect product administration duration [Unknown]
